FAERS Safety Report 8771481 (Version 2)
Quarter: 2013Q4

REPORT INFORMATION
  Report Type: Spontaneous
  Country: US (occurrence: US)
  Receive Date: 20120906
  Receipt Date: 20131101
  Transmission Date: 20140711
  Serious: No
  Sender: FDA-Public Use
  Company Number: US-009507513-1208USA011519

PATIENT
  Sex: Male

DRUGS (1)
  1. VICTRELIS [Suspect]
     Dosage: UNK
     Route: 048
     Dates: start: 20120702

REACTIONS (3)
  - Incorrect dose administered [Unknown]
  - Product quality issue [Unknown]
  - No adverse event [Unknown]
